FAERS Safety Report 4314855-2 (Version None)
Quarter: 2004Q1

REPORT INFORMATION
  Report Type: 
  Country: None (occurrence: None)
  Receive Date: 20040310
  Receipt Date: 20040310
  Transmission Date: 20041129
  Serious: Yes (Other)
  Sender: FDA-Public Use
  Company Number: None

PATIENT
  Age: 23 Year
  Sex: Male
  Weight: 45.3597 kg

DRUGS (1)
  1. ORTHO TRI-CYCLEN [Suspect]
     Indication: CONTRACEPTION
     Dosage: 1 PO QD
     Route: 048
     Dates: start: 20030520

REACTIONS (2)
  - HAEMORRHAGE [None]
  - PHARMACEUTICAL PRODUCT COMPLAINT [None]
